FAERS Safety Report 4618043-1 (Version None)
Quarter: 2005Q2

REPORT INFORMATION
  Report Type: 
  Country: None (occurrence: None)
  Receive Date: 20050316
  Receipt Date: 20041203
  Transmission Date: 20051028
  Serious: Yes (Life-Threatening, Hospitalization)
  Sender: FDA-Public Use
  Company Number: S04-USA-06047-01

PATIENT
  Age: 17 Year
  Sex: Male
  Weight: 63.5036 kg

DRUGS (3)
  1. LEXAPRO [Suspect]
     Indication: ANXIETY
     Dosage: 10 MG QD PO
     Route: 048
     Dates: start: 20040709, end: 20041001
  2. LEXAPRO [Suspect]
     Indication: DEPRESSION
     Dosage: 10 MG QD PO
     Route: 048
     Dates: start: 20040709, end: 20041001
  3. MARIJUANA [Suspect]
     Indication: ANXIETY

REACTIONS (6)
  - JOINT INJURY [None]
  - MUSCLE SPASMS [None]
  - NIGHT SWEATS [None]
  - SUICIDAL IDEATION [None]
  - SUICIDE ATTEMPT [None]
  - UPPER LIMB FRACTURE [None]
